FAERS Safety Report 4318478-0 (Version None)
Quarter: 2004Q1

REPORT INFORMATION
  Report Type: 
  Country: None (occurrence: None)
  Receive Date: 20040316
  Receipt Date: 20040316
  Transmission Date: 20041129
  Serious: Yes (Death)
  Sender: FDA-Public Use
  Company Number: None

PATIENT
  Age: 36 Year
  Sex: Female

DRUGS (1)
  1. ZYPREXA [Suspect]
     Dosage: PO QD
     Route: 048

REACTIONS (8)
  - ACCIDENTAL OVERDOSE [None]
  - ACUTE RESPIRATORY DISTRESS SYNDROME [None]
  - CONFUSIONAL STATE [None]
  - NEUTROPENIA [None]
  - PNEUMONIA [None]
  - PNEUMONIA ASPIRATION [None]
  - RENAL FAILURE ACUTE [None]
  - SEPSIS [None]
